FAERS Safety Report 11106253 (Version 1)
Quarter: 2015Q2

REPORT INFORMATION
  Report Type: Spontaneous
  Country: US (occurrence: US)
  Receive Date: 20150512
  Receipt Date: 20150512
  Transmission Date: 20150821
  Serious: Yes (Other)
  Sender: FDA-Public Use
  Company Number: US-JNJFOC-20150500449

PATIENT
  Age: 35 Year
  Sex: Female
  Weight: 90.72 kg

DRUGS (6)
  1. KLONOPIN [Concomitant]
     Active Substance: CLONAZEPAM
     Indication: SCHIZOPHRENIA
     Route: 065
  2. CLOZARIL [Concomitant]
     Active Substance: CLOZAPINE
     Indication: SCHIZOPHRENIA
     Route: 065
  3. INVEGA SUSTENNA [Suspect]
     Active Substance: PALIPERIDONE PALMITATE
     Indication: SCHIZOPHRENIA
     Route: 030
     Dates: start: 201302
  4. LATUDA [Concomitant]
     Active Substance: LURASIDONE HYDROCHLORIDE
     Indication: SCHIZOPHRENIA
     Route: 065
  5. LYRICA [Concomitant]
     Active Substance: PREGABALIN
     Indication: SCHIZOPHRENIA
     Route: 065
  6. LITHIUM. [Concomitant]
     Active Substance: LITHIUM
     Indication: SCHIZOPHRENIA
     Route: 065

REACTIONS (4)
  - Ankle fracture [Unknown]
  - Dystonia [Not Recovered/Not Resolved]
  - Peroneal nerve palsy [Unknown]
  - Schizophrenia [Recovered/Resolved]

NARRATIVE: CASE EVENT DATE: 2013
